FAERS Safety Report 7183334-X (Version None)
Quarter: 2010Q4

REPORT INFORMATION
  Report Type: 
  Country: None (occurrence: None)
  Receive Date: 20101208
  Receipt Date: 20101124
  Transmission Date: 20110411
  Serious: Yes (Hospitalization)
  Sender: FDA-Public Use
  Company Number: GER/GER/10/0013638

PATIENT
  Age: 57 Year
  Sex: Female
  Weight: 80 kg

DRUGS (11)
  1. RAMIPRIL [Suspect]
     Indication: HYPERTENSION
     Dosage: 10 MG, 2 IN 1 D, ORAL
     Route: 048
     Dates: end: 20080229
  2. SPIRONOLACTONE [Suspect]
     Indication: HYPERTENSION
     Dosage: 25 MG, 1 IN 1 D, ORAL
     Route: 048
     Dates: start: 20080219, end: 20080229
  3. DIOVAN [Suspect]
     Indication: HYPERTENSION
     Dosage: 160 MG, 2 IN 1 D, ORAL
     Route: 048
  4. BELOC ZOK MITE (METOPROLOL SUCCINATE) [Concomitant]
  5. EBRANTIL (URAPIDIL) [Concomitant]
  6. FUROSEMIDE [Concomitant]
  7. HCT-GAMMA (HYDROCHLOROTHIAZIDE) [Concomitant]
  8. INSUMAN INFUSAT (INSULIN HUMAN) [Concomitant]
  9. LEVOTHYROXINE SODIUM [Concomitant]
  10. MOXONIDINE (MOXONIDINE) [Concomitant]
  11. SIMVASTATIN [Concomitant]

REACTIONS (6)
  - CHEST DISCOMFORT [None]
  - HAEMODIALYSIS [None]
  - HYPERKALAEMIA [None]
  - HYPERTENSIVE CRISIS [None]
  - MALAISE [None]
  - NAUSEA [None]
